FAERS Safety Report 10706433 (Version 1)
Quarter: 2015Q1

REPORT INFORMATION
  Report Type: Spontaneous
  Country: US (occurrence: US)
  Receive Date: 20150113
  Receipt Date: 20150113
  Transmission Date: 20150721
  Serious: Yes (Other)
  Sender: FDA-Public Use
  Company Number: US-THROMBOGENICS NV-SPO-2014-1404

PATIENT
  Age: 62 Year
  Sex: Female

DRUGS (1)
  1. JETREA [Suspect]
     Active Substance: OCRIPLASMIN
     Dosage: 0.125 MG, ONE TIME DOSE
     Route: 031
     Dates: start: 20141021, end: 20141021

REACTIONS (3)
  - Macular hole [Unknown]
  - Visual acuity reduced [Unknown]
  - Disease progression [Unknown]

NARRATIVE: CASE EVENT DATE: 20141025
